FAERS Safety Report 9107061 (Version 2)
Quarter: 2013Q3

REPORT INFORMATION
  Report Type: Report from Study
  Country: NL (occurrence: NL)
  Receive Date: 20130221
  Receipt Date: 20130807
  Transmission Date: 20140515
  Serious: No
  Sender: FDA-Public Use
  Company Number: NL-ELI_LILLY_AND_COMPANY-NL201302003046

PATIENT
  Age: 79 Year
  Sex: Female
  Weight: 53 kg

DRUGS (16)
  1. TERIPARATIDE [Suspect]
     Indication: OSTEOPOROSIS
     Dosage: 20 UG, QD
     Route: 058
     Dates: start: 20130131, end: 20130201
  2. MORFINE [Concomitant]
  3. ACETYLSALICYLZUUR [Concomitant]
     Dosage: 80MG, UNK
  4. AMLODIPINE [Concomitant]
     Dosage: 5MG, UNK
  5. COLECALCIFEROL [Concomitant]
     Dosage: 400IE, UNK
  6. DIAZEPAM [Concomitant]
     Dosage: 5MG, UNK
  7. DICLOFENAC NA [Concomitant]
     Dosage: 50MG, UNK
  8. FLUVASTATIN [Concomitant]
     Dosage: 40MG, UNK
  9. FOLIUMZUUR [Concomitant]
     Dosage: 40MG, UNK
  10. ISOSORBIDEDINITRAAT [Concomitant]
     Dosage: 5MG, UNK
  11. MACROGOL [Concomitant]
  12. NAPROXEN [Concomitant]
     Dosage: 500MG, UNK
  13. NITROFURANTOIN [Concomitant]
     Dosage: 100MG, UNK
  14. OMEPRAZOL [Concomitant]
     Dosage: 20MG, UNK
  15. OXAZEPAM [Concomitant]
     Dosage: 10MG, UNK
  16. OXYCODON [Concomitant]
     Dosage: 10MG, 2D3T

REACTIONS (2)
  - Pain in extremity [Recovered/Resolved]
  - Movement disorder [Not Recovered/Not Resolved]
